FAERS Safety Report 8954265 (Version 1)
Quarter: 2012Q4

REPORT INFORMATION
  Report Type: 
  Country: FR (occurrence: FR)
  Receive Date: 20121207
  Receipt Date: 20121207
  Transmission Date: 20130627
  Serious: Yes (Hospitalization, Other)
  Sender: FDA-Public Use
  Company Number: PHHY2012FR110136

PATIENT
  Age: 59 Year
  Sex: Male

DRUGS (1)
  1. NISISCO [Suspect]
     Indication: HYPERTENSION
     Dosage: 1 DF (160mg vals, 25 mg HCT), daily
     Route: 048
     Dates: end: 20121104

REACTIONS (6)
  - Hemiplegia [Recovered/Resolved]
  - Aphasia [Recovered/Resolved]
  - Transient ischaemic attack [Recovered/Resolved]
  - Atrial fibrillation [Recovered/Resolved]
  - Hypotension [Recovered/Resolved]
  - Hypomagnesaemia [Unknown]
